FAERS Safety Report 6228407-0 (Version None)
Quarter: 2009Q2

REPORT INFORMATION
  Report Type: 
  Country: None (occurrence: None)
  Receive Date: 20090612
  Receipt Date: 20090529
  Transmission Date: 20091009
  Serious: Yes (Other)
  Sender: FDA-Public Use
  Company Number: TR-GENENTECH-284423

PATIENT
  Sex: Female
  Weight: 65 kg

DRUGS (1)
  1. XOLAIR [Suspect]
     Indication: ASTHMA
     Dosage: 300 MG, Q2W
     Route: 058
     Dates: start: 20090330, end: 20090428

REACTIONS (3)
  - CARDIAC DISORDER [None]
  - EAR DISCOMFORT [None]
  - ERYTHEMA [None]
